FAERS Safety Report 4316863-4 (Version None)
Quarter: 2004Q1

REPORT INFORMATION
  Report Type: 
  Country: None (occurrence: None)
  Receive Date: 20040309
  Receipt Date: 20040122
  Transmission Date: 20041129
  Serious: Yes (Hospitalization)
  Sender: FDA-Public Use
  Company Number: A03200400189

PATIENT
  Age: 40 Year
  Sex: Male
  Weight: 112.0385 kg

DRUGS (7)
  1. ELOXATIN [Suspect]
     Indication: COLORECTAL CANCER METASTATIC
     Dosage: 200 MG Q2W - INTRAVENOUS NOS
     Route: 042
     Dates: start: 20031229, end: 20031229
  2. ELOXATIN [Suspect]
     Indication: METASTASES TO LIVER
     Dosage: 200 MG Q2W - INTRAVENOUS NOS
     Route: 042
     Dates: start: 20031229, end: 20031229
  3. ELOXATIN [Suspect]
     Indication: METASTASES TO LUNG
     Dosage: 200 MG Q2W - INTRAVENOUS NOS
     Route: 042
     Dates: start: 20031229, end: 20031229
  4. DIPHENHYDRAMINE HCL [Concomitant]
  5. DEXAMETHASONE [Concomitant]
  6. FLUOROURACIL [Concomitant]
  7. LEUCOVORIN CALCIUM [Concomitant]

REACTIONS (8)
  - ABDOMINAL PAIN [None]
  - CHILLS [None]
  - DYSPNOEA [None]
  - FLUSHING [None]
  - HYPERHIDROSIS [None]
  - HYPERSENSITIVITY [None]
  - PYREXIA [None]
  - THROMBOCYTOPENIA [None]
